FAERS Safety Report 6861581-1 (Version None)
Quarter: 2010Q3

REPORT INFORMATION
  Report Type: 
  Country: None (occurrence: None)
  Receive Date: 20100721
  Receipt Date: 20100706
  Transmission Date: 20110219
  Serious: Yes (Death)
  Sender: FDA-Public Use
  Company Number: TR-MYLANLABS-2010S1011879

PATIENT
  Age: 36 Year
  Sex: Male

DRUGS (4)
  1. HALOPERIDOL [Suspect]
     Indication: ACUTE PSYCHOSIS
     Route: 030
  2. CHLORPROMAZINE [Suspect]
     Indication: ACUTE PSYCHOSIS
     Route: 030
  3. OLANZAPINE [Suspect]
     Indication: ACUTE PSYCHOSIS
     Route: 048
  4. RISPERIDONE [Suspect]
     Indication: SCHIZOPHRENIA
     Route: 048

REACTIONS (3)
  - CARDIO-RESPIRATORY ARREST [None]
  - RESPIRATORY DISTRESS [None]
  - SINUS TACHYCARDIA [None]
